FAERS Safety Report 8905297 (Version 3)
Quarter: 2014Q2

REPORT INFORMATION
  Report Type: Report from Study
  Country: SG (occurrence: SG)
  Receive Date: 20121112
  Receipt Date: 20140425
  Transmission Date: 20141212
  Serious: Yes (Death, Other)
  Sender: FDA-Public Use
  Company Number: SG-BRISTOL-MYERS SQUIBB COMPANY-17088741

PATIENT
  Age: 27 Year
  Sex: Male

DRUGS (1)
  1. SPRYCEL [Suspect]
     Dosage: INTERRUPTED FROM: 06MAY08-20MAY08.?05JUN09-11JUN09.?04FEB12-07FEB12.?03MAY12-06MAY12.?12OCT12
     Dates: start: 20050810

REACTIONS (6)
  - Septic shock [Fatal]
  - Pulmonary fibrosis [Unknown]
  - Pleural effusion [Not Recovered/Not Resolved]
  - Abdominal distension [Unknown]
  - Haematemesis [Unknown]
  - Respiratory distress [Unknown]
